FAERS Safety Report 15385105 (Version 1)
Quarter: 2018Q3

REPORT INFORMATION
  Report Type: Report from Study
  Country: None (occurrence: KW)
  Receive Date: 20180914
  Receipt Date: 20180914
  Transmission Date: 20181010
  Serious: Yes (Hospitalization)
  Sender: FDA-Public Use
  Company Number: KW-ABBVIE-18K-091-2483840-00

PATIENT
  Age: 24 Year
  Sex: Female

DRUGS (4)
  1. HUMIRA [Suspect]
     Active Substance: ADALIMUMAB
     Indication: CROHN^S DISEASE
     Dosage: LOADING DOSE
     Route: 058
     Dates: start: 2011, end: 2011
  2. HUMIRA [Suspect]
     Active Substance: ADALIMUMAB
     Dosage: AFTER TWO WEEKS
     Route: 058
     Dates: start: 2011, end: 2011
  3. HUMIRA [Suspect]
     Active Substance: ADALIMUMAB
     Route: 058
     Dates: start: 2011, end: 20180626
  4. HUMIRA [Suspect]
     Active Substance: ADALIMUMAB
     Dosage: DOSE INCREASED
     Route: 058
     Dates: start: 20180710

REACTIONS (4)
  - Anorectal swelling [Unknown]
  - Vomiting [Recovered/Resolved]
  - Abdominal pain [Recovered/Resolved]
  - Defaecation disorder [Recovered/Resolved]

NARRATIVE: CASE EVENT DATE: 2018
